FAERS Safety Report 18391578 (Version 1)
Quarter: 2020Q4

REPORT INFORMATION
  Report Type: Spontaneous
  Country: US (occurrence: US)
  Receive Date: 20201015
  Receipt Date: 20201015
  Transmission Date: 20210114
  Serious: Yes (Other)
  Sender: FDA-Public Use
  Company Number: None

PATIENT
  Age: 42 Year
  Sex: Male
  Weight: 155.8 kg

DRUGS (2)
  1. TEPROTUMUMAB. [Suspect]
     Active Substance: TEPROTUMUMAB
     Indication: THYROID DISORDER
     Dosage: ?          OTHER FREQUENCY:EVERY 3 WEEKS;?
     Route: 042
     Dates: start: 20200903
  2. TEPROTUMUMAB. [Suspect]
     Active Substance: TEPROTUMUMAB
     Indication: EYE DISORDER
     Dosage: ?          OTHER FREQUENCY:EVERY 3 WEEKS;?
     Route: 042
     Dates: start: 20200903

REACTIONS (2)
  - Drug ineffective [None]
  - Muscle spasms [None]

NARRATIVE: CASE EVENT DATE: 20200903
